FAERS Safety Report 9417579 (Version 1)
Quarter: 2013Q3

REPORT INFORMATION
  Report Type: Spontaneous
  Country: US (occurrence: US)
  Receive Date: 20130724
  Receipt Date: 20130724
  Transmission Date: 20140515
  Serious: No
  Sender: FDA-Public Use
  Company Number: US-BRISTOL-MYERS SQUIBB COMPANY-19008176

PATIENT
  Age: 80 Year
  Sex: Male
  Weight: 91.61 kg

DRUGS (8)
  1. ELIQUIS [Suspect]
     Indication: ATRIAL FIBRILLATION
     Route: 048
     Dates: start: 20130603, end: 20130608
  2. ASPIRIN [Suspect]
     Dates: start: 2008
  3. NEXIUM [Concomitant]
  4. PRAVACOL [Concomitant]
  5. SYNTHROID [Concomitant]
  6. VITAMIN B12 [Concomitant]
     Dosage: DF: 100UNITS.
  7. TERAZOSIN [Concomitant]
  8. SOTALOL [Concomitant]

REACTIONS (1)
  - Rectal haemorrhage [Unknown]
